FAERS Safety Report 8914547 (Version 1)
Quarter: 2012Q4

REPORT INFORMATION
  Report Type: 
  Country: DE (occurrence: DE)
  Receive Date: 20121119
  Receipt Date: 20121119
  Transmission Date: 20130627
  Serious: Yes (Death)
  Sender: FDA-Public Use
  Company Number: DE-UCBSA-070808

PATIENT
  Age: 80 Year
  Sex: Female

DRUGS (2)
  1. NEUPRO [Suspect]
     Indication: RESTLESS LEGS SYNDROME
     Dosage: DAILY DOSE: 4 MG/24
  2. IBUPROFEN [Concomitant]
     Indication: BONE DISORDER

REACTIONS (1)
  - Coma [Fatal]
